FAERS Safety Report 7495426-6 (Version None)
Quarter: 2011Q2

REPORT INFORMATION
  Report Type: 
  Country: None (occurrence: None)
  Receive Date: 20110523
  Receipt Date: 20110329
  Transmission Date: 20111010
  Serious: No
  Sender: FDA-Public Use
  Company Number: US-TYCO HEALTHCARE/MALLINCKRODT-T201100687

PATIENT
  Sex: Male

DRUGS (3)
  1. FENTANYL-100 [Suspect]
     Indication: BACK PAIN
     Dosage: 25 UG Q72 H
     Route: 062
     Dates: start: 20110309, end: 20110329
  2. LORTAB [Concomitant]
     Dosage: 10 MG, TID
     Route: 048
  3. OXYCODONE HCL [Concomitant]
     Dosage: HS
     Route: 048

REACTIONS (1)
  - DRUG INEFFECTIVE [None]
